FAERS Safety Report 12051166 (Version 3)
Quarter: 2016Q1

REPORT INFORMATION
  Report Type: Spontaneous
  Country: US (occurrence: US)
  Receive Date: 20160209
  Receipt Date: 20160318
  Transmission Date: 20160526
  Serious: No
  Sender: FDA-Public Use
  Company Number: US-PFIZER INC-2016018916

PATIENT
  Age: 58 Year
  Sex: Female

DRUGS (2)
  1. GEODON [Suspect]
     Active Substance: ZIPRASIDONE HYDROCHLORIDE\ZIPRASIDONE MESYLATE
     Indication: FINE MOTOR SKILL DYSFUNCTION
     Dosage: TWO 80MG TABLETS AT BEDTIME
     Dates: start: 1985
  2. GEODON [Suspect]
     Active Substance: ZIPRASIDONE HYDROCHLORIDE\ZIPRASIDONE MESYLATE
     Indication: HORMONE LEVEL ABNORMAL

REACTIONS (1)
  - Tremor [Unknown]
